FAERS Safety Report 6803581-3 (Version None)
Quarter: 2010Q2

REPORT INFORMATION
  Report Type: 
  Country: None (occurrence: None)
  Receive Date: 20100628
  Receipt Date: 20100617
  Transmission Date: 20101027
  Serious: No
  Sender: FDA-Public Use
  Company Number: US-JNJFOC-20100606076

PATIENT
  Sex: Male
  Weight: 127.01 kg

DRUGS (2)
  1. INVEGA [Suspect]
     Indication: OBSESSIVE-COMPULSIVE DISORDER
     Route: 048
  2. INVEGA [Suspect]
     Route: 048

REACTIONS (2)
  - MEMORY IMPAIRMENT [None]
  - OFF LABEL USE [None]
